FAERS Safety Report 10360890 (Version 1)
Quarter: 2014Q3

REPORT INFORMATION
  Report Type: Report from Study
  Country: BR (occurrence: BR)
  Receive Date: 20140804
  Receipt Date: 20140804
  Transmission Date: 20150326
  Serious: Yes (Death, Hospitalization, Other)
  Sender: FDA-Public Use
  Company Number: PHHY2014BR095242

PATIENT
  Age: 82 Year
  Sex: Female
  Weight: 75 kg

DRUGS (13)
  1. DILTIAZEM RETARD [Concomitant]
     Active Substance: DILTIAZEM
     Indication: HYPERTENSION
     Dosage: 2 DF, BID (TWO TABLETS IN THE MORNING AND TW TABLETS AT NIGHT)
  2. LACTULONA [Concomitant]
     Indication: GASTROINTESTINAL DISORDER
     Dosage: 1 CUP, TID (ONE CUP IN THE MORNING, ONE CUP IN THE AFTERNOOON AND ONE CUP AT NIGHT)
  3. MAREVAN [Concomitant]
     Active Substance: WARFARIN SODIUM
     Indication: BLOOD DISORDER
     Dosage: 1.5 DF, UNK (ONE TBALET ON MONDAY AND WEDNESDAY, AND HALF A TABLET ON FRIDAY, SATUDRAY AND SUNDAY)
  4. VECASTEN [Concomitant]
     Indication: PAIN IN EXTREMITY
     Dosage: 1 DF, QD (IN THE MORNING)
  5. ACETYLCYSTEINE. [Concomitant]
     Active Substance: ACETYLCYSTEINE
     Indication: NASOPHARYNGITIS
     Dosage: UNK UKN, QHS (600MG/5G)
  6. GLIFAGE [Concomitant]
     Active Substance: METFORMIN HYDROCHLORIDE
     Indication: BLOOD GLUCOSE ABNORMAL
     Dosage: 1 DF, QHS
  7. OMEPRAZOLE. [Concomitant]
     Active Substance: OMEPRAZOLE
     Indication: GASTRIC DISORDER
     Dosage: 1 DF, QD (IN THE MORNING)
  8. PURAN [Concomitant]
     Active Substance: LEVOTHYROXINE SODIUM
     Indication: THYROID DISORDER
     Dosage: 1 DF, DAILY
  9. FUROSEMIDE. [Concomitant]
     Active Substance: FUROSEMIDE
     Indication: DIURETIC THERAPY
     Dosage: 1 DF, DAILY
  10. ALLOPURINOL. [Concomitant]
     Active Substance: ALLOPURINOL
     Indication: BLOOD URIC ACID
     Dosage: 1 DF, DAILY
  11. ALDACTONE [Concomitant]
     Active Substance: SPIRONOLACTONE
     Indication: CARDIAC DISORDER
     Dosage: 1 DF, DAILY
  12. ALENIA                             /01538101/ [Concomitant]
     Active Substance: BUDESONIDE\FORMOTEROL FUMARATE
     Indication: RESPIRATORY DISORDER
     Dosage: UNK UKN, UNK (TO ASPIRATE IN THE MORNING AND AT NIGHT)
  13. EXELON PATCH [Suspect]
     Active Substance: RIVASTIGMINE
     Indication: DEMENTIA ALZHEIMER^S TYPE
     Dosage: 4.6 MG, UNK
     Route: 062
     Dates: end: 20140728

REACTIONS (2)
  - Bronchitis [Unknown]
  - Pneumonia [Fatal]

NARRATIVE: CASE EVENT DATE: 20140720
